FAERS Safety Report 13468489 (Version 4)
Quarter: 2017Q2

REPORT INFORMATION
  Report Type: Report from Study
  Country: FR (occurrence: FR)
  Receive Date: 20170421
  Receipt Date: 20170519
  Transmission Date: 20170830
  Serious: Yes (Hospitalization)
  Sender: FDA-Public Use
  Company Number: FR-ASTRAZENECA-2017SE39604

PATIENT
  Age: 28132 Day
  Sex: Male
  Weight: 74 kg

DRUGS (5)
  1. RADIOTHERAPY [Suspect]
     Active Substance: RADIATION THERAPY
     Indication: SOFT TISSUE SARCOMA
     Dosage: IMRT TECH; LAST DOSE = 1.8 GRAY, TOTAL DOSE = 59.4 GY
     Route: 065
     Dates: start: 20170207
  2. CORTANCYL [Concomitant]
     Active Substance: PREDNISONE
     Dates: start: 20170120
  3. OMEPRAZOLE. [Concomitant]
     Active Substance: OMEPRAZOLE
     Indication: PROPHYLAXIS
     Dates: start: 20170120
  4. OLAPARIB [Suspect]
     Active Substance: OLAPARIB
     Indication: SOFT TISSUE SARCOMA
     Dosage: LAST DOSE = 50MG AND CUMULATIVE DOSE = 3500MG
     Route: 048
     Dates: start: 20170131
  5. KARDEGIC [Concomitant]
     Active Substance: ASPIRIN LYSINE
     Indication: PERIPHERAL VENOUS DISEASE
     Dates: start: 2013

REACTIONS (1)
  - Erysipelas [Recovered/Resolved]

NARRATIVE: CASE EVENT DATE: 20170412
